FAERS Safety Report 8822612 (Version 2)
Quarter: 2012Q4

REPORT INFORMATION
  Report Type: 
  Country: US (occurrence: US)
  Receive Date: 20121003
  Receipt Date: 20121118
  Transmission Date: 20130627
  Serious: No
  Sender: FDA-Public Use
  Company Number: US-TEVA-361641USA

PATIENT
  Age: 47 Year
  Sex: Female

DRUGS (5)
  1. PROAIR HFA [Suspect]
     Indication: DYSPNOEA
     Dates: start: 20120820
  2. QVAR [Suspect]
     Indication: DYSPNOEA
     Dates: start: 20120820
  3. MOTRIN [Concomitant]
  4. XANAX [Concomitant]
  5. UNSPECIFIED PAIN MEDICATIONS [Concomitant]

REACTIONS (2)
  - Large intestine polyp [Unknown]
  - Haemorrhoids [Unknown]
